FAERS Safety Report 19023616 (Version 1)
Quarter: 2021Q1

REPORT INFORMATION
  Report Type: Spontaneous
  Country: US (occurrence: US)
  Receive Date: 20210318
  Receipt Date: 20210318
  Transmission Date: 20210420
  Serious: No
  Sender: FDA-Public Use
  Company Number: US-AUROBINDO-AUR-APL-2020-048539

PATIENT
  Age: 59 Year
  Sex: Female

DRUGS (4)
  1. GABAPENTIN CAPSULES 300 MG [Suspect]
     Active Substance: GABAPENTIN
     Indication: RESTLESS LEGS SYNDROME
     Dosage: 600 MILLIGRAM, 3 TIMES A DAY
     Route: 048
     Dates: start: 202009
  2. PRAMIPEXOLE DIHYDROCHLORIDE TABLETS 0.75MG [Suspect]
     Active Substance: PRAMIPEXOLE DIHYDROCHLORIDE
     Dosage: 2 DOSAGE FORM, TWO TIMES A DAY (2 TABLETS BY MOUTH TWICE DAILY)
     Route: 048
  3. PRAMIPEXOLE DIHYDROCHLORIDE TABLETS 0.75MG [Suspect]
     Active Substance: PRAMIPEXOLE DIHYDROCHLORIDE
     Dosage: 2 DOSAGE FORM, 3 TIMES A DAY (2 TABLETS BY MOUTH 3 TIMES DAILY)
     Route: 048
     Dates: start: 202008
  4. PRAMIPEXOLE DIHYDROCHLORIDE TABLETS 0.75MG [Suspect]
     Active Substance: PRAMIPEXOLE DIHYDROCHLORIDE
     Indication: RESTLESS LEGS SYNDROME
     Dosage: 1 DOSAGE FORM, TWO TIMES A DAY (1 TABLET BY MOUTH TWICE DAILY)
     Route: 048

REACTIONS (4)
  - Intentional product use issue [Unknown]
  - Drug ineffective [Unknown]
  - Self-medication [Unknown]
  - Physical product label issue [Unknown]
